FAERS Safety Report 17339379 (Version 12)
Quarter: 2021Q3

REPORT INFORMATION
  Report Type: Spontaneous
  Country: US (occurrence: US)
  Receive Date: 20200129
  Receipt Date: 20210927
  Transmission Date: 20211014
  Serious: Yes (Hospitalization)
  Sender: FDA-Public Use
  Company Number: US-PFIZER INC-2020039227

PATIENT
  Age: 78 Year
  Sex: Female
  Weight: 62.14 kg

DRUGS (6)
  1. PREMARIN [Suspect]
     Active Substance: ESTROGENS, CONJUGATED
     Indication: HYSTERECTOMY
     Dosage: 0.625 MG, DAILY
     Route: 048
  2. PREMARIN [Suspect]
     Active Substance: ESTROGENS, CONJUGATED
     Dosage: 0.625 MG, ONCE A DAY
     Route: 048
  3. PREMARIN [Suspect]
     Active Substance: ESTROGENS, CONJUGATED
     Indication: HORMONE REPLACEMENT THERAPY
     Dosage: HIGHER DOSE, CYCLIC
     Route: 048
  4. XANAX [Concomitant]
     Active Substance: ALPRAZOLAM
     Indication: SUPRAVENTRICULAR TACHYCARDIA
     Dosage: 0.25 MG, TWICE DAILY (AM AND PM)
  5. DIGOXIN. [Concomitant]
     Active Substance: DIGOXIN
     Indication: SUPRAVENTRICULAR TACHYCARDIA
     Dosage: 0.125 MG, DAILY
  6. PREMARIN [Suspect]
     Active Substance: ESTROGENS, CONJUGATED
     Dosage: 0.625 MG,1X/DAY
     Route: 048

REACTIONS (8)
  - Visual impairment [Unknown]
  - Illness [Unknown]
  - Weight increased [Unknown]
  - Product dose omission issue [Unknown]
  - Malaise [Unknown]
  - Nasal congestion [Unknown]
  - Hypoacusis [Recovered/Resolved]
  - Drug ineffective [Unknown]
